FAERS Safety Report 6913697-9 (Version None)
Quarter: 2010Q3

REPORT INFORMATION
  Report Type: 
  Country: None (occurrence: None)
  Receive Date: 20100806
  Receipt Date: 20100806
  Transmission Date: 20110219
  Serious: Yes (Other)
  Sender: FDA-Public Use
  Company Number: None

PATIENT
  Age: 68 Year
  Sex: Female
  Weight: 76.6579 kg

DRUGS (1)
  1. LISINOPRIL [Suspect]
     Indication: HYPERTENSION
     Dosage: 5MG 1 PER DAY ORAL
     Route: 048
     Dates: start: 20100421, end: 20100714

REACTIONS (3)
  - COUGH [None]
  - INCREASED BRONCHIAL SECRETION [None]
  - SLEEP DISORDER [None]
